FAERS Safety Report 7668121-8 (Version None)
Quarter: 2011Q3

REPORT INFORMATION
  Report Type: 
  Country: None (occurrence: None)
  Receive Date: 20110808
  Receipt Date: 20110727
  Transmission Date: 20111222
  Serious: Yes (Hospitalization)
  Sender: FDA-Public Use
  Company Number: FR-JNJFOC-20110800178

PATIENT
  Sex: Female

DRUGS (10)
  1. TANAKAN [Concomitant]
     Indication: PRODUCT USED FOR UNKNOWN INDICATION
     Dosage: 2 TABLETS OF 12.5 MG TWICE PER DAY
     Route: 065
  2. ACETAMINOPHEN [Concomitant]
     Indication: PRODUCT USED FOR UNKNOWN INDICATION
     Dosage: 2 TABLETS OF 12.5 MG TWICE PER DAY
     Route: 065
  3. DEBRIDAT [Concomitant]
     Indication: PRODUCT USED FOR UNKNOWN INDICATION
     Dosage: 2 TABLETS OF 12.5 MG TWICE PER DAY
     Route: 065
  4. STABLON [Concomitant]
     Indication: PRODUCT USED FOR UNKNOWN INDICATION
     Dosage: 2 TABLETS OF 12.5 MG TWICE PER DAY
     Route: 048
  5. COOLMETEC [Concomitant]
     Indication: PRODUCT USED FOR UNKNOWN INDICATION
     Route: 048
     Dates: end: 20100129
  6. GAVISCON [Concomitant]
     Indication: PRODUCT USED FOR UNKNOWN INDICATION
     Dosage: 2 TABLETS OF 12.5 MG TWICE PER DAY
     Route: 065
  7. DURAGESIC-100 [Suspect]
     Route: 062
     Dates: start: 20100108, end: 20100129
  8. ACETAMINOPHEN AND TRAMADOL HCL [Concomitant]
     Indication: PAIN
     Dosage: 2 TABLETS OF 12.5 MG TWICE PER DAY
  9. DURAGESIC-100 [Suspect]
     Indication: PAIN
     Route: 062
     Dates: start: 20100103, end: 20100107
  10. PERSANTINE [Concomitant]
     Indication: PRODUCT USED FOR UNKNOWN INDICATION
     Route: 048

REACTIONS (5)
  - MIOSIS [None]
  - HAEMATEMESIS [None]
  - DEPRESSED LEVEL OF CONSCIOUSNESS [None]
  - URINARY RETENTION [None]
  - SOMNOLENCE [None]
